FAERS Safety Report 6065127-X (Version None)
Quarter: 2009Q1

REPORT INFORMATION
  Report Type: 
  Country: None (occurrence: None)
  Receive Date: 20090204
  Receipt Date: 20090202
  Transmission Date: 20090719
  Serious: Yes (Other)
  Sender: FDA-Public Use
  Company Number: JP-AVENTIS-200910266JP

PATIENT
  Age: 55 Year
  Sex: Male

DRUGS (1)
  1. AMARYL [Suspect]
     Route: 048
     Dates: start: 20090128

REACTIONS (1)
  - URINARY RETENTION [None]
